FAERS Safety Report 6555866-6 (Version None)
Quarter: 2010Q1

REPORT INFORMATION
  Report Type: 
  Country: None (occurrence: None)
  Receive Date: 20100128
  Receipt Date: 20100122
  Transmission Date: 20100710
  Serious: Yes (Hospitalization)
  Sender: FDA-Public Use
  Company Number: TW-BAYER-201010939GPV

PATIENT
  Age: 81 Year
  Sex: Male
  Weight: 64 kg

DRUGS (30)
  1. SORAFENIB [Suspect]
     Indication: HEPATIC NEOPLASM MALIGNANT
     Dosage: TOTAL DAILY DOSE: 400 MG
     Route: 048
     Dates: start: 20091201, end: 20091231
  2. ADRIAMYCIN PFS [Concomitant]
     Indication: THERAPEUTIC EMBOLISATION
     Dates: start: 20091125, end: 20091125
  3. SILYMARIN [Concomitant]
     Indication: HEPATITIS B
     Route: 048
     Dates: start: 20100122
  4. SILYMARIN [Concomitant]
     Dosage: TOTAL DAILY DOSE: 150 MG
     Dates: start: 20091024, end: 20091230
  5. ACETAMINOPHEN [Concomitant]
     Indication: PROPHYLAXIS
     Dosage: TOTAL DAILY DOSE: 500 MG
     Dates: start: 20091125, end: 20091130
  6. LACTIOL HCL [Concomitant]
     Indication: CONSTIPATION
     Route: 048
     Dates: start: 20100111, end: 20100115
  7. LACTIOL HCL [Concomitant]
     Route: 048
     Dates: start: 20100101, end: 20100102
  8. INSULIN [Concomitant]
     Indication: DIABETES MELLITUS
     Route: 058
     Dates: start: 20100102, end: 20100102
  9. INSULIN [Concomitant]
     Route: 058
     Dates: start: 20100103, end: 20100104
  10. INSULIN [Concomitant]
     Route: 058
     Dates: start: 20100115, end: 20100116
  11. INSULIN [Concomitant]
     Route: 058
     Dates: start: 20100106, end: 20100107
  12. INSULIN [Concomitant]
     Route: 058
     Dates: start: 20100112, end: 20100113
  13. INSULIN [Concomitant]
     Route: 058
     Dates: start: 20100103, end: 20100106
  14. INSULIN [Concomitant]
     Route: 058
     Dates: start: 20100106, end: 20100107
  15. CLARINASE [Concomitant]
     Indication: RHINORRHOEA
     Route: 048
     Dates: start: 20100105, end: 20100106
  16. POTASSIUM CHLORIDE [Concomitant]
     Indication: PROPHYLAXIS
     Route: 048
     Dates: start: 20100111, end: 20100112
  17. MUCAINE [Concomitant]
     Route: 048
     Dates: start: 20100111, end: 20100112
  18. ACETYLCYSTEINE [Concomitant]
     Indication: PRODUCTIVE COUGH
     Route: 048
     Dates: start: 20100122
  19. ACETYLCYSTEINE [Concomitant]
     Route: 048
     Dates: start: 20100112, end: 20100113
  20. ALBUMIN (HUMAN) [Concomitant]
     Indication: BLOOD ALBUMIN DECREASED
     Dosage: 2 BOT
     Route: 042
     Dates: start: 20100112, end: 20100113
  21. SENOKOT [Concomitant]
     Indication: ABDOMINAL PAIN
     Route: 048
     Dates: start: 20100122
  22. MAGNESIUM OXIDE [Concomitant]
     Indication: CONSTIPATION
     Route: 048
     Dates: start: 20100122
  23. MOSAPRIDE CITRATE [Concomitant]
     Indication: ABDOMINAL PAIN
     Route: 048
     Dates: start: 20100122
  24. ALDACTONE [Concomitant]
     Indication: ASCITES
     Route: 048
     Dates: start: 20100122
  25. FUROSEMIDE [Concomitant]
     Indication: ASCITES
     Route: 042
     Dates: start: 20100119, end: 20100119
  26. FUROSEMIDE [Concomitant]
     Route: 042
     Dates: start: 20100112, end: 20100113
  27. FUROSEMIDE [Concomitant]
     Route: 048
     Dates: start: 20100121, end: 20100122
  28. METFORMIN [Concomitant]
     Indication: DIABETES MELLITUS
     Route: 048
     Dates: start: 20100122
  29. DICLOFENAC SODIUM [Concomitant]
     Indication: EAR INFECTION
     Route: 048
     Dates: start: 20100122
  30. PEICHIA [Concomitant]
     Indication: EAR INFECTION
     Route: 048
     Dates: start: 20100107, end: 20100115

REACTIONS (2)
  - CEREBROVASCULAR ACCIDENT [None]
  - DEPRESSED LEVEL OF CONSCIOUSNESS [None]
